FAERS Safety Report 25225571 (Version 1)
Quarter: 2025Q2

REPORT INFORMATION
  Report Type: Report from Study
  Country: US (occurrence: US)
  Receive Date: 20250422
  Receipt Date: 20250422
  Transmission Date: 20250717
  Serious: Yes (Hospitalization)
  Sender: ALEXION PHARMACEUTICALS
  Company Number: US-AstraZeneca-CH-00851080A

PATIENT
  Age: 62 Year

DRUGS (1)
  1. CAPIVASERTIB [Suspect]
     Active Substance: CAPIVASERTIB
     Indication: Breast cancer female
     Dosage: 400MG EVERY MORNING, 200MG EVERY EVENING, 4 DAYS ON/3 DAYS OFF

REACTIONS (3)
  - Intestinal perforation [Unknown]
  - Ileus [Unknown]
  - Flatulence [Unknown]
